FAERS Safety Report 10313071 (Version 2)
Quarter: 2014Q3

REPORT INFORMATION
  Report Type: Spontaneous
  Country: US (occurrence: US)
  Receive Date: 20140718
  Receipt Date: 20140723
  Transmission Date: 20150326
  Serious: Yes (Hospitalization, Other)
  Sender: FDA-Public Use
  Company Number: US-PFIZER INC-2014197732

PATIENT
  Age: 74 Year
  Sex: Male

DRUGS (5)
  1. FLAGYL [Suspect]
     Active Substance: METRONIDAZOLE\METRONIDAZOLE HYDROCHLORIDE
     Dosage: UNK
  2. LEVAQUIN [Suspect]
     Active Substance: LEVOFLOXACIN
     Dosage: UNK
  3. PHENOXYMETHYLPENICILLIN POTASSIUM [Suspect]
     Active Substance: PENICILLIN V POTASSIUM
     Dosage: UNK
  4. CINOBAC [Suspect]
     Active Substance: CINOXACIN
     Dosage: UNK
  5. MACRODANTIN [Suspect]
     Active Substance: NITROFURANTOIN
     Dosage: UNK

REACTIONS (2)
  - Swelling [Unknown]
  - Drug hypersensitivity [Unknown]
